FAERS Safety Report 6261189-5 (Version None)
Quarter: 2009Q3

REPORT INFORMATION
  Report Type: 
  Country: None (occurrence: None)
  Receive Date: 20090709
  Receipt Date: 20080626
  Transmission Date: 20100115
  Serious: No
  Sender: FDA-Public Use
  Company Number: US-KINGPHARMUSA00001-K200800750

PATIENT
  Age: 73 Year
  Sex: Female

DRUGS (3)
  1. LEVOXYL [Suspect]
     Indication: AUTOIMMUNE THYROIDITIS
     Dosage: 125 MCG, QD
     Route: 048
  2. DARVOCET [Concomitant]
  3. ATIVAN [Concomitant]
     Dosage: UNK, UNK

REACTIONS (3)
  - ABDOMINAL DISCOMFORT [None]
  - DYSPNOEA [None]
  - OROPHARYNGEAL PAIN [None]
